FAERS Safety Report 9827788 (Version 3)
Quarter: 2014Q1

REPORT INFORMATION
  Report Type: Report from Study
  Country: AU (occurrence: AU)
  Receive Date: 20140117
  Receipt Date: 20140123
  Transmission Date: 20141002
  Serious: Yes (Hospitalization)
  Sender: FDA-Public Use
  Company Number: AU-BRISTOL-MYERS SQUIBB COMPANY-19735216

PATIENT
  Age: 61 Year
  Sex: Female

DRUGS (4)
  1. ORENCIA [Suspect]
     Indication: RHEUMATOID ARTHRITIS
     Dosage: ON 1NOV09 ALSO
     Route: 042
     Dates: start: 20090506
  2. METHOTREXATE [Concomitant]
  3. PARACETAMOL [Concomitant]
  4. NEXIUM [Concomitant]

REACTIONS (9)
  - Back pain [Unknown]
  - Muscular weakness [Unknown]
  - Intervertebral disc protrusion [Unknown]
  - Transient acantholytic dermatosis [Unknown]
  - Malaise [Recovering/Resolving]
  - Weight decreased [Recovering/Resolving]
  - Nausea [Unknown]
  - Vomiting [Unknown]
  - Urinary tract infection [Unknown]
